FAERS Safety Report 8430332-1 (Version None)
Quarter: 2012Q2

REPORT INFORMATION
  Report Type: 
  Country: None (occurrence: None)
  Receive Date: 20120323
  Receipt Date: 20110705
  Transmission Date: 20120825
  Serious: Yes (Hospitalization)
  Sender: FDA-Public Use
  Company Number: 163-21880-11070453

PATIENT
  Age: 63 Year
  Sex: Female

DRUGS (9)
  1. LENALIDOMIDE [Suspect]
     Indication: MULTIPLE MYELOMA
     Dosage: 25 MG, /21 CAPS, PO
     Route: 048
     Dates: start: 20110315
  2. FUROSEMIDE [Concomitant]
  3. ENDOCET (OXYCOCET) [Concomitant]
  4. VELCADE [Concomitant]
  5. SIMVASTATIN [Concomitant]
  6. POTASSIUM CITRATE [Concomitant]
  7. DIAZEPAM [Concomitant]
  8. OMEPRAZOLE [Concomitant]
  9. ZOMETA [Concomitant]

REACTIONS (1)
  - LOCALISED INFECTION [None]
